FAERS Safety Report 25087554 (Version 2)
Quarter: 2025Q2

REPORT INFORMATION
  Report Type: Spontaneous
  Country: US (occurrence: US)
  Receive Date: 20250318
  Receipt Date: 20250401
  Transmission Date: 20250717
  Serious: Yes (Other)
  Sender: ROCHE
  Company Number: US-ROCHE-10000227729

PATIENT
  Age: 76 Year
  Sex: Male

DRUGS (6)
  1. ATEZOLIZUMAB [Suspect]
     Active Substance: ATEZOLIZUMAB
     Indication: Hormone-refractory prostate cancer
     Route: 065
  2. CABOZANTINIB [Suspect]
     Active Substance: CABOZANTINIB
     Indication: Hormone-refractory prostate cancer
     Route: 065
  3. DOCETAXEL [Concomitant]
     Active Substance: DOCETAXEL
  4. ENZALUTAMIDE [Concomitant]
     Active Substance: ENZALUTAMIDE
  5. SIPULEUCEL-T [Concomitant]
     Active Substance: SIPULEUCEL-T
  6. ABIRATERONE [Concomitant]
     Active Substance: ABIRATERONE

REACTIONS (1)
  - Disease progression [Unknown]
